FAERS Safety Report 5221295-0 (Version None)
Quarter: 2007Q1

REPORT INFORMATION
  Report Type: 
  Country: None (occurrence: None)
  Receive Date: 20070126
  Receipt Date: 20070116
  Transmission Date: 20070707
  Serious: Yes (Hospitalization)
  Sender: FDA-Public Use
  Company Number: DE-PFIZER INC-2006147071

PATIENT
  Sex: Female
  Weight: 70 kg

DRUGS (1)
  1. CLINDAMYCIN HCL [Suspect]
     Indication: TOOTH DISORDER
     Dates: start: 20060101, end: 20061124

REACTIONS (5)
  - ANGIOEDEMA [None]
  - COUGH [None]
  - DYSPHONIA [None]
  - PRURITUS [None]
  - RASH GENERALISED [None]
